FAERS Safety Report 9201888 (Version 1)
Quarter: 2013Q1

REPORT INFORMATION
  Report Type: Spontaneous
  Country: JP (occurrence: None)
  Receive Date: 20130327
  Receipt Date: 20130327
  Transmission Date: 20140127
  Serious: Yes (Hospitalization)
  Sender: FDA-Public Use
  Company Number: 146758

PATIENT
  Age: 48 Year
  Sex: Male

DRUGS (1)
  1. CARBOPLATIN [Suspect]
     Indication: LUNG ADENOCARCINOMA METASTATIC

REACTIONS (5)
  - Portal hypertension [None]
  - Oesophageal varices haemorrhage [None]
  - Hypotension [None]
  - Normochromic normocytic anaemia [None]
  - Blood urea increased [None]
